FAERS Safety Report 5266868-4 (Version None)
Quarter: 2007Q1

REPORT INFORMATION
  Report Type: 
  Country: None (occurrence: None)
  Receive Date: 20070316
  Receipt Date: 20070307
  Transmission Date: 20070707
  Serious: Yes (Other)
  Sender: FDA-Public Use
  Company Number: PHEH2006US14319

PATIENT
  Age: 79 Year
  Sex: Female

DRUGS (5)
  1. ZOMETA [Suspect]
     Indication: MULTIPLE MYELOMA
     Dosage: 4 MG, Q 4 WEEKS
     Dates: start: 20060518, end: 20061013
  2. DECADRON                                /CAN/ [Concomitant]
     Indication: MULTIPLE MYELOMA
     Dosage: 20 MG, QW
     Dates: start: 20060622
  3. COUMADIN [Concomitant]
     Indication: PULMONARY EMBOLISM
     Dosage: 5 MG, QD
     Route: 048
     Dates: start: 20060921
  4. CELEBREX [Concomitant]
     Indication: ARTHRITIS
     Dosage: 200 MG, QD
     Route: 048
     Dates: start: 20061027
  5. ENABLEX [Concomitant]
     Indication: HYPERTONIC BLADDER
     Dosage: 7.5 MG, QD
     Route: 048
     Dates: start: 20061027

REACTIONS (2)
  - DISCOMFORT [None]
  - OSTEONECROSIS [None]
